FAERS Safety Report 5913809-X (Version None)
Quarter: 2008Q4

REPORT INFORMATION
  Report Type: 
  Country: None (occurrence: None)
  Receive Date: 20081007
  Receipt Date: 20080923
  Transmission Date: 20090506
  Serious: Yes (Other)
  Sender: FDA-Public Use
  Company Number: ENTC2008-0309

PATIENT
  Age: 58 Year

DRUGS (3)
  1. STALEVO 100 [Suspect]
     Indication: PARKINSON'S DISEASE
     Dosage: SEE IMAGE
  2. SIFROL [Concomitant]
  3. AMANTADINE HCL [Concomitant]

REACTIONS (4)
  - FAECAL INCONTINENCE [None]
  - HALLUCINATION [None]
  - INCORRECT DOSE ADMINISTERED [None]
  - URINARY INCONTINENCE [None]
